FAERS Safety Report 6002962-8 (Version None)
Quarter: 2008Q4

REPORT INFORMATION
  Report Type: 
  Country: None (occurrence: None)
  Receive Date: 20081212
  Receipt Date: 20081202
  Transmission Date: 20090506
  Serious: Yes (Other)
  Sender: FDA-Public Use
  Company Number: ENT 2008-0197

PATIENT
  Age: 69 Year
  Sex: Male

DRUGS (5)
  1. COMTAN [Suspect]
     Dosage: 400 MG (200 MG, 2 IN 1 D) ORAL
     Route: 048
     Dates: start: 20081111
  2. METFORMIN HCL [Concomitant]
  3. FLUDIAZEPAM [Concomitant]
  4. SINEMET [Concomitant]
  5. ASPIRIN [Concomitant]

REACTIONS (4)
  - CONFUSIONAL STATE [None]
  - DIZZINESS [None]
  - DRUG INTOLERANCE [None]
  - FATIGUE [None]
